FAERS Safety Report 5717409-6 (Version None)
Quarter: 2008Q2

REPORT INFORMATION
  Report Type: 
  Country: None (occurrence: None)
  Receive Date: 20080424
  Receipt Date: 20080424
  Transmission Date: 20081010
  Serious: No
  Sender: FDA-Public Use
  Company Number: None

PATIENT
  Sex: Male
  Weight: 22.2263 kg

DRUGS (1)
  1. SINGULAIR [Suspect]
     Indication: ASTHMA
     Dates: start: 20070801, end: 20080327

REACTIONS (13)
  - ABDOMINAL PAIN UPPER [None]
  - AGGRESSION [None]
  - ANGER [None]
  - DEPRESSION [None]
  - DIZZINESS [None]
  - MASTICATION DISORDER [None]
  - MUSCLE SPASMS [None]
  - MUSCLE TWITCHING [None]
  - NIGHTMARE [None]
  - PARANOIA [None]
  - SELF ESTEEM DECREASED [None]
  - SUICIDE ATTEMPT [None]
  - TIC [None]
